FAERS Safety Report 5354786-2 (Version None)
Quarter: 2007Q2

REPORT INFORMATION
  Report Type: 
  Country: None (occurrence: None)
  Receive Date: 20070611
  Receipt Date: 20070601
  Transmission Date: 20071010
  Serious: Yes (Hospitalization)
  Sender: FDA-Public Use
  Company Number: B0473804A

PATIENT
  Age: 43 Year
  Sex: Female

DRUGS (2)
  1. PAXIL [Suspect]
     Indication: DEPRESSION
     Dosage: 20 MG, PER DAY; ORAL
     Route: 048
  2. BENZODIAZEPINES [Concomitant]

REACTIONS (1)
  - SEROTONIN SYNDROME [None]
